FAERS Safety Report 12326432 (Version 4)
Quarter: 2017Q4

REPORT INFORMATION
  Report Type: Report from Study
  Country: AU (occurrence: AU)
  Receive Date: 20160503
  Receipt Date: 20171024
  Transmission Date: 20180320
  Serious: Yes (Hospitalization, Other)
  Sender: FDA-Public Use
  Company Number: PHHY2014AU091685

PATIENT
  Sex: Female

DRUGS (5)
  1. PREDNISONE. [Concomitant]
     Active Substance: PREDNISONE
     Indication: PRODUCT USED FOR UNKNOWN INDICATION
     Dosage: 10 MG, QD
     Route: 065
  2. PREDNISONE. [Concomitant]
     Active Substance: PREDNISONE
     Dosage: 5 MG, QD
     Route: 065
  3. SANDOSTATIN LAR DEPOT [Suspect]
     Active Substance: OCTREOTIDE ACETATE
     Dosage: 20 MG, UNK
     Route: 030
  4. SANDOSTATIN LAR DEPOT [Suspect]
     Active Substance: OCTREOTIDE ACETATE
     Dosage: 30 MG, QMO (MONTHLY)
     Route: 030
  5. SANDOSTATIN LAR DEPOT [Suspect]
     Active Substance: OCTREOTIDE ACETATE
     Indication: CARCINOID SYNDROME
     Dosage: 30 MG, UNK
     Route: 030

REACTIONS (12)
  - Metastases to larynx [Not Recovered/Not Resolved]
  - Diarrhoea [Recovering/Resolving]
  - Second primary malignancy [Not Recovered/Not Resolved]
  - Lung infection [Recovering/Resolving]
  - Lung cancer metastatic [Not Recovered/Not Resolved]
  - Decreased appetite [Unknown]
  - Speech disorder [Not Recovered/Not Resolved]
  - Malaise [Unknown]
  - Malignant neoplasm progression [Not Recovered/Not Resolved]
  - Incontinence [Unknown]
  - Blood pressure abnormal [Unknown]
  - Gastrointestinal disorder [Unknown]
